FAERS Safety Report 7249410-8 (Version None)
Quarter: 2011Q1

REPORT INFORMATION
  Report Type: 
  Country: None (occurrence: None)
  Receive Date: 20110110
  Receipt Date: 20110110
  Transmission Date: 20110831
  Serious: Yes (Hospitalization)
  Sender: FDA-Public Use
  Company Number: None

PATIENT
  Sex: Male
  Weight: 61.2356 kg

DRUGS (1)
  1. STERILE ALCOHOL SWABS 70% ISOPROPYL ALCOHOL BOCA [Suspect]
     Indication: DIABETES MELLITUS
     Dosage: 1 PAD 4 X'S DAILY ID
     Route: 023
     Dates: start: 19920103, end: 20100108

REACTIONS (6)
  - INFECTION [None]
  - BURNING SENSATION [None]
  - BRONCHITIS [None]
  - CHRONIC OBSTRUCTIVE PULMONARY DISEASE [None]
  - PNEUMONIA [None]
  - ABASIA [None]
